FAERS Safety Report 5897014-1 (Version None)
Quarter: 2008Q3

REPORT INFORMATION
  Report Type: 
  Country: None (occurrence: None)
  Receive Date: 20080924
  Receipt Date: 20080320
  Transmission Date: 20090109
  Serious: Yes (Other)
  Sender: FDA-Public Use
  Company Number: US-ASTRAZENECA-2008UW05698

PATIENT
  Age: 39 Year
  Sex: Female
  Weight: 61.2 kg

DRUGS (5)
  1. SEROQUEL [Suspect]
     Indication: DEPRESSION
     Route: 048
     Dates: start: 20080201
  2. SEROQUEL [Suspect]
     Route: 048
     Dates: start: 20080201
  3. LEXAPRO [Concomitant]
  4. CLONAZEPAM [Concomitant]
  5. INSULIN [Concomitant]

REACTIONS (1)
  - BLOOD GLUCOSE DECREASED [None]
